FAERS Safety Report 25422666 (Version 2)
Quarter: 2025Q2

REPORT INFORMATION
  Report Type: Spontaneous
  Country: FR (occurrence: FR)
  Receive Date: 20250611
  Receipt Date: 20250617
  Transmission Date: 20250716
  Serious: Yes (Other)
  Sender: PFIZER
  Company Number: None

PATIENT
  Age: 1 Day
  Sex: Male
  Weight: 4 kg

DRUGS (3)
  1. DOSTINEX [Suspect]
     Active Substance: CABERGOLINE
     Indication: Pituitary tumour benign
     Dosage: 0.5 MG, WEEKLY
     Route: 064
     Dates: start: 202404, end: 20250114
  2. HYDROCORTISONE [Suspect]
     Active Substance: HYDROCORTISONE
     Indication: Pituitary tumour benign
     Dosage: 15 MG, 1X/DAY
     Route: 064
     Dates: start: 202404, end: 20250114
  3. LEVOTHYROXINE SODIUM [Suspect]
     Active Substance: LEVOTHYROXINE SODIUM
     Indication: Pituitary tumour benign
     Dosage: 125 UG, 1X/DAY
     Route: 064
     Dates: start: 202404, end: 20250114

REACTIONS (3)
  - Hyperkalaemia [Recovered/Resolved]
  - Somnolence neonatal [Recovered/Resolved]
  - Maternal exposure during pregnancy [Unknown]

NARRATIVE: CASE EVENT DATE: 20240401
